FAERS Safety Report 6206531-6 (Version None)
Quarter: 2009Q2

REPORT INFORMATION
  Report Type: 
  Country: None (occurrence: None)
  Receive Date: 20090528
  Receipt Date: 20090519
  Transmission Date: 20091009
  Serious: No
  Sender: FDA-Public Use
  Company Number: US-ELI_LILLY_AND_COMPANY-US200903007139

PATIENT
  Sex: Female
  Weight: 113.83 kg

DRUGS (10)
  1. CYMBALTA [Suspect]
     Indication: FIBROMYALGIA
     Dosage: 90 MG, UNK
     Dates: start: 20050101, end: 20070101
  2. CYMBALTA [Suspect]
     Dosage: 30 MG, UNK
     Dates: start: 20070101
  3. CYMBALTA [Suspect]
     Dosage: 90 MG, UNK
     Dates: start: 20070925
  4. LISINOPRIL [Concomitant]
  5. SPIRONOLACTONE [Concomitant]
  6. FUROSEMIDE [Concomitant]
     Dosage: UNK, AS NEEDED
  7. NITROFURANTOIN [Concomitant]
  8. MIRAPEX [Concomitant]
  9. REQUIP [Concomitant]
     Dosage: 2 MG, UNK
  10. LUNESTA [Concomitant]

REACTIONS (11)
  - ALANINE AMINOTRANSFERASE INCREASED [None]
  - BLOOD ALKALINE PHOSPHATASE INCREASED [None]
  - BLOOD PRESSURE FLUCTUATION [None]
  - DRUG INEFFECTIVE [None]
  - DRUG WITHDRAWAL SYNDROME [None]
  - EAR PAIN [None]
  - HEART RATE ABNORMAL [None]
  - INFLUENZA [None]
  - PAIN IN JAW [None]
  - SKIN CANDIDA [None]
  - THROMBOSIS [None]
